FAERS Safety Report 5167213-5 (Version None)
Quarter: 2006Q4

REPORT INFORMATION
  Report Type: 
  Country: None (occurrence: None)
  Receive Date: 20061130
  Receipt Date: 20061117
  Transmission Date: 20070319
  Serious: Yes (Hospitalization)
  Sender: FDA-Public Use
  Company Number: 2005169338

PATIENT
  Age: 57 Year
  Sex: Male
  Weight: 76 kg

DRUGS (12)
  1. SUTENT [Suspect]
     Indication: GASTROINTESTINAL STROMAL TUMOUR
     Dosage: 50 MG( 50 MG, 1 IN 1 D), ORAL
     Route: 048
     Dates: start: 20051130, end: 20051222
  2. DURAGESIC-100 [Concomitant]
  3. AMOXICILLIN [Concomitant]
  4. BUDESONIDE [Concomitant]
  5. DOMPERIDONE (DOMPERIDONE) [Concomitant]
  6. HALOPERIDOL [Concomitant]
  7. FUROSEMIDE [Concomitant]
  8. DIPYRONE TAB [Concomitant]
  9. KALIUM (POTASSIUM CHLORIDE) [Concomitant]
  10. MOVICOL (MACROGOL, POTASSIUM CHLORIDE, SODIUM BICARBONATE, SODIUM CHLO [Concomitant]
  11. MORPHINE SULFATE [Concomitant]
  12. DIMENHYDRINATE [Concomitant]

REACTIONS (2)
  - DYSKINESIA [None]
  - GENERAL PHYSICAL HEALTH DETERIORATION [None]
